FAERS Safety Report 9230101 (Version 1)
Quarter: 2013Q1

REPORT INFORMATION
  Report Type: Spontaneous
  Country: US (occurrence: None)
  Receive Date: 20121024
  Receipt Date: 20121024
  Transmission Date: 20140127
  Serious: Yes (Other)
  Sender: FDA-Public Use
  Company Number: 1110USA00235

PATIENT
  Age: 60 Year
  Sex: Male
  Weight: 72.6 kg

DRUGS (2)
  1. MEVACOR [Suspect]
     Indication: BLOOD CHOLESTEROL INCREASED
     Route: 048
     Dates: start: 200809, end: 200809
  2. MK-9278 (VITAMINS) [Concomitant]

REACTIONS (1)
  - Chest pain [None]
